FAERS Safety Report 10142027 (Version 1)
Quarter: 2014Q2

REPORT INFORMATION
  Report Type: Report from Study
  Country: ES (occurrence: ES)
  Receive Date: 20140429
  Receipt Date: 20140429
  Transmission Date: 20141212
  Serious: Yes (Other)
  Sender: FDA-Public Use
  Company Number: ES-ASTELLAS-2014US004566

PATIENT
  Sex: 0

DRUGS (1)
  1. ERLOTINIB [Suspect]
     Indication: NON-SMALL CELL LUNG CANCER
     Dosage: UNK, UNKNOWN FREQ.
     Route: 065

REACTIONS (5)
  - Dyspepsia [Unknown]
  - Rash [Unknown]
  - Diarrhoea [Unknown]
  - Asthenia [Unknown]
  - Eye disorder [Unknown]
